FAERS Safety Report 4449183-8 (Version None)
Quarter: 2004Q3

REPORT INFORMATION
  Report Type: 
  Country: None (occurrence: None)
  Receive Date: 20040910
  Receipt Date: 20040830
  Transmission Date: 20050211
  Serious: Yes (Other)
  Sender: FDA-Public Use
  Company Number: 2004061455

PATIENT
  Age: 40 Year
  Sex: Female

DRUGS (1)
  1. ZYRTEC [Suspect]
     Indication: DERMATITIS ALLERGIC
     Dosage: SEE IMAGE, ORAL
     Route: 048
     Dates: start: 20030701

REACTIONS (6)
  - BLOOD PROLACTIN INCREASED [None]
  - GALACTORRHOEA [None]
  - MENORRHAGIA [None]
  - MENSTRUATION IRREGULAR [None]
  - OLIGOMENORRHOEA [None]
  - PITUITARY TUMOUR BENIGN [None]
